FAERS Safety Report 10705798 (Version 1)
Quarter: 2015Q1

REPORT INFORMATION
  Report Type: Spontaneous
  Country: US (occurrence: US)
  Receive Date: 20150112
  Receipt Date: 20150112
  Transmission Date: 20150721
  Serious: No
  Sender: FDA-Public Use
  Company Number: US-GLAXOSMITHKLINE-US2014036224

PATIENT
  Age: 52 Year
  Sex: Male

DRUGS (2)
  1. NICORETTE FRUIT CHILL [Suspect]
     Active Substance: NICOTINE
     Indication: SMOKING CESSATION THERAPY
     Dosage: 4 MG, UNK
     Route: 002
  2. NICORETTE FRUIT CHILL [Suspect]
     Active Substance: NICOTINE
     Dosage: 2 MG, UNK
     Route: 002

REACTIONS (2)
  - Nicotine dependence [Unknown]
  - Drug administration error [Unknown]
